FAERS Safety Report 15787432 (Version 2)
Quarter: 2019Q3

REPORT INFORMATION
  Report Type: Spontaneous
  Country: US (occurrence: US)
  Receive Date: 20190103
  Receipt Date: 20190812
  Transmission Date: 20191004
  Serious: No
  Sender: FDA-Public Use
  Company Number: US-MYLANLABS-2018M1096952

PATIENT
  Sex: Female
  Weight: 109 kg

DRUGS (2)
  1. TADALAFIL TABLETS USP [Suspect]
     Active Substance: TADALAFIL
     Indication: HYPERTENSION
  2. TADALAFIL TABLETS USP [Suspect]
     Active Substance: TADALAFIL
     Indication: DYSPNOEA
     Dosage: 20 MILLIGRAM
     Route: 048
     Dates: start: 20181127, end: 20181129

REACTIONS (8)
  - Blood glucose fluctuation [Not Recovered/Not Resolved]
  - Dysphagia [Recovering/Resolving]
  - Lacrimation increased [Recovered/Resolved]
  - Swelling face [Recovering/Resolving]
  - Eye swelling [Recovering/Resolving]
  - Musculoskeletal pain [Recovering/Resolving]
  - Sluggishness [Unknown]
  - Pain in extremity [Recovering/Resolving]
